FAERS Safety Report 9693958 (Version 1)
Quarter: 2013Q4

REPORT INFORMATION
  Report Type: Spontaneous
  Country: GB (occurrence: None)
  Receive Date: 20131114
  Receipt Date: 20131114
  Transmission Date: 20140711
  Serious: Yes (Death, Life-Threatening, Hospitalization, Other)
  Sender: FDA-Public Use
  Company Number: GB-MACLEODS PHARMA-000164

PATIENT
  Age: 83 Year
  Sex: Male
  Weight: 53 kg

DRUGS (6)
  1. DONEPEZIL [Suspect]
     Indication: DEMENTIA
     Dosage: 5.00-MG-2.00 TIMES PER-1.0DAYS
     Route: 048
     Dates: start: 20120723, end: 20130723
  2. CALCICHEW D3 (CALCICHEW D3) [Concomitant]
  3. AMTRIPTYLINE (AMTRIPTYLINE) [Concomitant]
  4. GANFORT (GANFORT) [Concomitant]
  5. PROPRANOLOL (PROPRANOLOL) [Concomitant]
  6. TRAMADOL (TRAMADOL) [Concomitant]

REACTIONS (3)
  - Duodenal ulcer [None]
  - Duodenal ulcer haemorrhage [None]
  - Melaena [None]
